FAERS Safety Report 19660966 (Version 1)
Quarter: 2021Q3

REPORT INFORMATION
  Report Type: Spontaneous
  Country: US (occurrence: US)
  Receive Date: 20210805
  Receipt Date: 20210805
  Transmission Date: 20211014
  Serious: No
  Sender: FDA-Public Use
  Company Number: None

PATIENT

DRUGS (8)
  1. GABAPENTIN. [Suspect]
     Active Substance: GABAPENTIN
     Route: 048
  2. RISPERIDONE. [Suspect]
     Active Substance: RISPERIDONE
     Route: 048
  3. TOPIRAMATE. [Suspect]
     Active Substance: TOPIRAMATE
     Route: 048
  4. LAMOTRIGINE. [Suspect]
     Active Substance: LAMOTRIGINE
     Route: 048
  5. DULOXETINE. [Suspect]
     Active Substance: DULOXETINE
     Route: 048
  6. DULOXETINE SODIUM EXTENDED RELEASE [Suspect]
     Active Substance: DULOXETINE HYDROCHLORIDE
     Route: 048
  7. SUBOXONE [Suspect]
     Active Substance: BUPRENORPHINE HYDROCHLORIDE\NALOXONE HYDROCHLORIDE
     Route: 060
  8. FERROUS FUMARATE [Suspect]
     Active Substance: FERROUS FUMARATE
     Route: 048

REACTIONS (3)
  - Wrong product administered [None]
  - Depressed level of consciousness [None]
  - Transcription medication error [None]
